FAERS Safety Report 14076960 (Version 1)
Quarter: 2017Q4

REPORT INFORMATION
  Report Type: Spontaneous
  Country: US (occurrence: US)
  Receive Date: 20171011
  Receipt Date: 20171011
  Transmission Date: 20180321
  Serious: Yes (Other)
  Sender: FDA-Public Use
  Company Number: US-BEH-2017084166

PATIENT
  Sex: Female
  Weight: 77.98 kg

DRUGS (26)
  1. HIZENTRA [Suspect]
     Active Substance: HUMAN IMMUNOGLOBULIN G
     Dosage: UNK
     Route: 058
  2. AUGMENTIN [Concomitant]
     Active Substance: AMOXICILLIN\CLAVULANATE POTASSIUM
  3. PREDNISONE. [Concomitant]
     Active Substance: PREDNISONE
  4. SYMBICORT [Concomitant]
     Active Substance: BUDESONIDE\FORMOTEROL FUMARATE DIHYDRATE
  5. CARISOPRODOL. [Concomitant]
     Active Substance: CARISOPRODOL
  6. EPINEPHRINE. [Concomitant]
     Active Substance: EPINEPHRINE
  7. OXYGEN. [Concomitant]
     Active Substance: OXYGEN
  8. BYETTA [Concomitant]
     Active Substance: EXENATIDE
  9. LISINOPRIL. [Concomitant]
     Active Substance: LISINOPRIL
  10. VENTOLIN [Concomitant]
     Active Substance: ALBUTEROL SULFATE
  11. POTASSIUM [Concomitant]
     Active Substance: POTASSIUM
  12. PREMARIN [Concomitant]
     Active Substance: ESTROGENS, CONJUGATED
  13. FUROSEMIDE. [Concomitant]
     Active Substance: FUROSEMIDE
  14. SIMVASTATIN. [Concomitant]
     Active Substance: SIMVASTATIN
  15. CARVEDILOL. [Concomitant]
     Active Substance: CARVEDILOL
  16. OMEPRAZOLE. [Concomitant]
     Active Substance: OMEPRAZOLE
  17. OXYCONTIN [Concomitant]
     Active Substance: OXYCODONE HYDROCHLORIDE
  18. LIDOCAINE. [Concomitant]
     Active Substance: LIDOCAINE
  19. REQUIP [Concomitant]
     Active Substance: ROPINIROLE HYDROCHLORIDE
  20. ZOLPIDEM [Concomitant]
     Active Substance: ZOLPIDEM\ZOLPIDEM TARTRATE
  21. LYRICA [Concomitant]
     Active Substance: PREGABALIN
  22. GABAPENTIN. [Concomitant]
     Active Substance: GABAPENTIN
  23. HIZENTRA [Suspect]
     Active Substance: HUMAN IMMUNOGLOBULIN G
     Indication: IMMUNODEFICIENCY COMMON VARIABLE
     Dosage: 16 G, QOW
     Route: 058
     Dates: start: 20160328
  24. ACETAMINOPHEN. [Concomitant]
     Active Substance: ACETAMINOPHEN
  25. DIPHENHYDRAMINE. [Concomitant]
     Active Substance: DIPHENHYDRAMINE
  26. METFORMIN [Concomitant]
     Active Substance: METFORMIN HYDROCHLORIDE

REACTIONS (1)
  - Dyspnoea [Unknown]
